FAERS Safety Report 15546150 (Version 1)
Quarter: 2018Q4

REPORT INFORMATION
  Report Type: Spontaneous
  Country: GB (occurrence: GB)
  Receive Date: 20181024
  Receipt Date: 20181024
  Transmission Date: 20190205
  Serious: Yes (Other)
  Sender: FDA-Public Use
  Company Number: PHHY2018GB134207

PATIENT
  Age: 39 Year
  Sex: Female
  Weight: 79 kg

DRUGS (2)
  1. IBUPROFEN. [Concomitant]
     Active Substance: IBUPROFEN
     Indication: PRODUCT USED FOR UNKNOWN INDICATION
     Dosage: UNK
     Route: 065
  2. SUMATRIPTAN SUCCINATE SANDOZ [Suspect]
     Active Substance: SUMATRIPTAN
     Indication: MIGRAINE
     Dosage: 50 MG, UNK
     Route: 048
     Dates: start: 20181004, end: 20181004

REACTIONS (3)
  - Loss of consciousness [Recovered/Resolved]
  - Dyspnoea [Recovered/Resolved]
  - Palpitations [Recovering/Resolving]

NARRATIVE: CASE EVENT DATE: 20181004
